FAERS Safety Report 24860310 (Version 5)
Quarter: 2025Q2

REPORT INFORMATION
  Report Type: Report from Study
  Country: CA (occurrence: CA)
  Receive Date: 20250120
  Receipt Date: 20250505
  Transmission Date: 20250717
  Serious: Yes (Other)
  Sender: SANDOZ
  Company Number: CA-SANDOZ-SDZ2023CA059344

PATIENT
  Sex: Female
  Weight: 68.934 kg

DRUGS (3)
  1. HYRIMOZ [Suspect]
     Active Substance: ADALIMUMAB-ADAZ
     Dosage: 1.5 MG, TID (PRE-FILLED SYRINGE)
     Route: 058
  2. HYRIMOZ [Suspect]
     Active Substance: ADALIMUMAB-ADAZ
     Dosage: 40MG SC WEEKLY
     Route: 058
  3. HYRIMOZ [Suspect]
     Active Substance: ADALIMUMAB-ADAZ
     Indication: Crohn^s disease
     Dosage: 40MG SC EVERY OTHER WEEK;EVERY TWO WEEKS
     Route: 058
     Dates: start: 20230712

REACTIONS (9)
  - Pulmonary hypertension [Unknown]
  - Thrombosis [Unknown]
  - Lung disorder [Unknown]
  - Joint swelling [Unknown]
  - Hypotension [Unknown]
  - Cardiac disorder [Unknown]
  - Weight increased [Unknown]
  - Pain in extremity [Unknown]
  - Off label use [Unknown]
